FAERS Safety Report 10076766 (Version 2)
Quarter: 2014Q2

REPORT INFORMATION
  Report Type: Report from Study
  Country: CN (occurrence: CN)
  Receive Date: 20140414
  Receipt Date: 20140528
  Transmission Date: 20141212
  Serious: Yes (Hospitalization)
  Sender: FDA-Public Use
  Company Number: CN-BRISTOL-MYERS SQUIBB COMPANY-20612032

PATIENT
  Age: 51 Year
  Sex: Male
  Weight: 72 kg

DRUGS (4)
  1. BYETTA [Suspect]
     Indication: TYPE 2 DIABETES MELLITUS
     Route: 058
     Dates: start: 20140314, end: 20140331
  2. GLUCOBAY [Concomitant]
     Indication: TYPE 2 DIABETES MELLITUS
     Route: 048
  3. NOVONORM [Concomitant]
     Indication: TYPE 2 DIABETES MELLITUS
     Route: 048
  4. GLUCOPHAGE [Concomitant]
     Indication: TYPE 2 DIABETES MELLITUS
     Dosage: 1DF:1PILL
     Route: 048
     Dates: start: 20140314

REACTIONS (4)
  - Nephrolithiasis [Recovered/Resolved]
  - Abdominal discomfort [Recovered/Resolved]
  - Dyspepsia [Recovered/Resolved]
  - Pyrexia [Recovered/Resolved]
